FAERS Safety Report 15489492 (Version 1)
Quarter: 2018Q4

REPORT INFORMATION
  Report Type: Spontaneous
  Country: US (occurrence: US)
  Receive Date: 20181011
  Receipt Date: 20181011
  Transmission Date: 20190205
  Serious: No
  Sender: FDA-Public Use
  Company Number: US-PERRIGO-18US004670

PATIENT
  Sex: Female
  Weight: 61.22 kg

DRUGS (1)
  1. NICOTINE POLACRILEX [Suspect]
     Active Substance: NICOTINE
     Indication: SMOKING CESSATION THERAPY
     Dosage: 2 MG, EVERY 2 HOURS, 6 TO 7 TIMES DAILY
     Route: 002
     Dates: start: 2016, end: 201804

REACTIONS (2)
  - Nausea [Unknown]
  - Hiccups [Unknown]
